FAERS Safety Report 24726009 (Version 3)
Quarter: 2025Q1

REPORT INFORMATION
  Report Type: Spontaneous
  Country: FR (occurrence: FR)
  Receive Date: 20241212
  Receipt Date: 20250115
  Transmission Date: 20250408
  Serious: Yes (Hospitalization)
  Sender: IMMUNOCORE
  Company Number: FR-IMMUNOCORE, LTD-2024-IMC-003450

PATIENT

DRUGS (2)
  1. KIMMTRAK [Suspect]
     Active Substance: TEBENTAFUSP-TEBN
     Indication: Uveal melanoma
     Route: 042
     Dates: start: 20240912
  2. KIMMTRAK [Suspect]
     Active Substance: TEBENTAFUSP-TEBN
     Route: 042
     Dates: start: 20241121

REACTIONS (1)
  - Acute myocardial infarction [Recovered/Resolved]

NARRATIVE: CASE EVENT DATE: 20241125
